FAERS Safety Report 7702049-X (Version None)
Quarter: 2011Q3

REPORT INFORMATION
  Report Type: 
  Country: None (occurrence: None)
  Receive Date: 20110822
  Receipt Date: 20110812
  Transmission Date: 20111222
  Serious: Yes (Death, Life-Threatening, Hospitalization)
  Sender: FDA-Public Use
  Company Number: US-MPIJNJ-2011-02502

PATIENT
  Sex: Male
  Weight: 95.873 kg

DRUGS (43)
  1. DOXORUBICIN HCL [Suspect]
     Indication: MANTLE CELL LYMPHOMA
     Dosage: 50 MG/M2, CYCLIC
     Route: 042
     Dates: start: 20110610, end: 20110613
  2. ZOLPIDEM TARTRATE [Concomitant]
     Indication: PRODUCT USED FOR UNKNOWN INDICATION
     Dosage: UNK
     Route: 048
     Dates: start: 20110602
  3. ONDANSETRON [Concomitant]
     Indication: PRODUCT USED FOR UNKNOWN INDICATION
     Dosage: UNK
     Route: 048
     Dates: start: 20110602
  4. DIATRIZOATE SODIUM W/MEGLUMINE DIATRIZOATE [Concomitant]
     Indication: PRODUCT USED FOR UNKNOWN INDICATION
     Dosage: UNK
     Route: 048
     Dates: start: 20110603
  5. ALLOPURINOL [Concomitant]
     Indication: PRODUCT USED FOR UNKNOWN INDICATION
     Dosage: UNK
     Route: 048
     Dates: start: 20110605
  6. SODIUM BICARBONATE [Concomitant]
     Indication: PRODUCT USED FOR UNKNOWN INDICATION
     Dosage: UNK
     Route: 042
     Dates: start: 20110607
  7. PROCHLORPERAZINE EDISYLATE [Concomitant]
     Indication: NAUSEA
     Dosage: 10 UNK, PRN
     Route: 042
     Dates: start: 20110602
  8. PANTOPRAZOLE SODIUM [Concomitant]
     Indication: PRODUCT USED FOR UNKNOWN INDICATION
     Dosage: 40 MG, QD
     Route: 048
     Dates: start: 20110603
  9. MAGNESIUM OXIDE [Concomitant]
     Indication: PRODUCT USED FOR UNKNOWN INDICATION
     Dosage: UNK
     Route: 048
     Dates: start: 20110603
  10. MULTI-VITAMINS [Concomitant]
     Indication: SUPPLEMENTATION THERAPY
     Dosage: UNK
     Route: 048
  11. TRAMADOL HCL [Suspect]
     Indication: PAIN
     Dosage: 50 MG, PRN
     Route: 048
  12. VINCRISTINE [Suspect]
     Indication: MANTLE CELL LYMPHOMA
     Dosage: 1.4 MG/M2, CYCLIC
     Route: 042
     Dates: start: 20110613, end: 20110620
  13. FUROSEMIDE [Concomitant]
     Indication: PRODUCT USED FOR UNKNOWN INDICATION
     Dosage: 40 MG, UNK
     Route: 040
     Dates: start: 20110610
  14. MEPERIDINE HCL [Concomitant]
     Indication: PRODUCT USED FOR UNKNOWN INDICATION
     Dosage: UNK
     Dates: start: 20110612
  15. CIPROFLOXACIN [Concomitant]
     Indication: INFECTION
     Dosage: 500 MG, BID
     Route: 048
  16. WHITE PETROLEUM [Concomitant]
     Indication: PRODUCT USED FOR UNKNOWN INDICATION
     Dosage: UNK
     Dates: start: 20110602
  17. SIMETHICONE [Concomitant]
     Indication: PRODUCT USED FOR UNKNOWN INDICATION
     Dosage: UNK
     Route: 048
     Dates: start: 20110602
  18. HYDROMORPHONE HCL [Concomitant]
     Indication: PRODUCT USED FOR UNKNOWN INDICATION
     Dosage: 1 MG, PRN
     Route: 040
     Dates: start: 20110602
  19. PROCHLORPERAZINE EDISYLATE [Concomitant]
     Indication: VOMITING
     Dosage: 10 MG, UNK
     Route: 048
  20. LOPERAMIDE HCL [Concomitant]
     Indication: PRODUCT USED FOR UNKNOWN INDICATION
     Dosage: UNK
     Route: 048
     Dates: start: 20110610
  21. LEVALBUTEROL HYDROCHLORIDE [Concomitant]
     Indication: PRODUCT USED FOR UNKNOWN INDICATION
     Dosage: UNK
     Route: 055
     Dates: start: 20110610
  22. MESNA [Concomitant]
     Indication: MANTLE CELL LYMPHOMA
     Dosage: 600 MG/M2, CYCLIC
     Route: 042
     Dates: start: 20110609, end: 20110611
  23. HALOPERIDOL LACTATE [Concomitant]
     Indication: PRODUCT USED FOR UNKNOWN INDICATION
     Dosage: 1 MG, PRN
     Route: 040
     Dates: start: 20110602
  24. SENOKOT [Concomitant]
     Indication: PRODUCT USED FOR UNKNOWN INDICATION
     Dosage: UNK
     Route: 048
     Dates: start: 20110602
  25. POTASSIUM CHLORIDE [Concomitant]
     Indication: PRODUCT USED FOR UNKNOWN INDICATION
     Dosage: UNK
     Route: 048
     Dates: start: 20110603
  26. MIDAZOLAM HCL [Concomitant]
     Indication: PRODUCT USED FOR UNKNOWN INDICATION
     Dosage: UNK
     Route: 048
     Dates: start: 20110609
  27. FILGRASTIM [Concomitant]
     Indication: PRODUCT USED FOR UNKNOWN INDICATION
     Dosage: 480 UG, UNK
     Route: 058
     Dates: start: 20110610
  28. SEVELAMER HYDROCHLORIDE [Concomitant]
     Indication: PRODUCT USED FOR UNKNOWN INDICATION
     Dosage: UNK
     Route: 048
     Dates: start: 20110611
  29. FLUCONAZOLE [Concomitant]
     Indication: INFECTION PROPHYLAXIS
     Dosage: 100 MG, QD
     Route: 048
  30. DEXAMETHASONE [Suspect]
     Indication: MANTLE CELL LYMPHOMA
     Dosage: 40 MG, CYCLIC
     Route: 048
     Dates: start: 20110609, end: 20110620
  31. LORAZEPAM [Concomitant]
     Indication: PRODUCT USED FOR UNKNOWN INDICATION
     Dosage: 0.5 MG, PRN
     Route: 042
     Dates: start: 20110602
  32. PRAMOXINE HYDROCHLORIDE [Concomitant]
     Indication: PRODUCT USED FOR UNKNOWN INDICATION
     Dosage: UNK
     Route: 054
     Dates: start: 20110602
  33. ACETAMINOPHEN [Concomitant]
     Indication: PYREXIA
     Dosage: 650 MG, PRN
     Route: 048
     Dates: start: 20110609
  34. VALACICLOVIR [Concomitant]
     Indication: PRODUCT USED FOR UNKNOWN INDICATION
     Dosage: 500 MG, QD
     Route: 048
     Dates: start: 20110610
  35. CYCLOPHOSPHAMIDE [Suspect]
     Indication: MANTLE CELL LYMPHOMA
     Dosage: 300 MG/M2, CYCLIC
     Route: 042
     Dates: start: 20110609, end: 20110609
  36. OXYCODONE HCL [Concomitant]
     Indication: PRODUCT USED FOR UNKNOWN INDICATION
     Dosage: UNK
     Route: 048
     Dates: start: 20110602
  37. SODIUM PHOSPHATE [Concomitant]
     Indication: PRODUCT USED FOR UNKNOWN INDICATION
     Dosage: UNK
     Route: 048
     Dates: start: 20110603
  38. HEPARIN [Concomitant]
     Indication: PRODUCT USED FOR UNKNOWN INDICATION
     Dosage: UNK
     Route: 042
     Dates: start: 20110607
  39. DOXYCYCLINE [Concomitant]
     Indication: INFECTION
     Dosage: 100 MG, BID
     Route: 048
  40. VELCADE [Suspect]
     Indication: MANTLE CELL LYMPHOMA
     Dosage: 1.3 MG/M2, CYCLIC
     Route: 040
     Dates: start: 20110610, end: 20110613
  41. RITUXIMAB [Suspect]
     Indication: MANTLE CELL LYMPHOMA
     Dosage: 375 MG/M2, CYCLIC
     Route: 042
     Dates: start: 20110613, end: 20110613
  42. DIPHENHYDRAMINE HCL [Concomitant]
     Indication: PRODUCT USED FOR UNKNOWN INDICATION
     Dosage: 12.5 MG, PRN
     Route: 040
     Dates: start: 20110602
  43. AMLODIPINE [Concomitant]
     Indication: BLOOD PRESSURE
     Dosage: 5 MG, QD
     Route: 048

REACTIONS (5)
  - CARDIAC ARREST [None]
  - ACUTE RESPIRATORY DISTRESS SYNDROME [None]
  - SEPTIC SHOCK [None]
  - LACTIC ACIDOSIS [None]
  - RENAL FAILURE [None]
